FAERS Safety Report 5402198-5 (Version None)
Quarter: 2007Q3

REPORT INFORMATION
  Report Type: 
  Country: None (occurrence: None)
  Receive Date: 20070801
  Receipt Date: 20070727
  Transmission Date: 20080115
  Serious: Yes (Hospitalization)
  Sender: FDA-Public Use
  Company Number: FR-BRISTOL-MYERS SQUIBB COMPANY-13861638

PATIENT
  Age: 63 Year
  Sex: Male

DRUGS (9)
  1. ELISOR TABS [Suspect]
     Route: 048
     Dates: end: 20070622
  2. BACTRIM [Suspect]
     Indication: URINARY TRACT INFECTION
     Dates: start: 20070529, end: 20070621
  3. OFLOCET [Suspect]
     Dates: start: 20070529, end: 20070621
  4. AMARYL [Suspect]
     Indication: HYPERURICAEMIA
     Dates: end: 20070621
  5. ALLOPURINOL [Suspect]
     Indication: TYPE 2 DIABETES MELLITUS
     Dates: end: 20070621
  6. RENITEC [Suspect]
     Indication: HYPERTENSION
     Dates: end: 20070622
  7. TENORDATE [Concomitant]
  8. BURINEX [Concomitant]
  9. KALEORID [Concomitant]

REACTIONS (1)
  - THROMBOCYTOPENIA [None]
